FAERS Safety Report 8236225-7 (Version None)
Quarter: 2012Q1

REPORT INFORMATION
  Report Type: 
  Country: None (occurrence: None)
  Receive Date: 20120327
  Receipt Date: 20120321
  Transmission Date: 20120608
  Serious: No
  Sender: FDA-Public Use
  Company Number: US-BIOGENIDEC-2012BI010019

PATIENT
  Sex: Male

DRUGS (2)
  1. AVONEX [Suspect]
     Indication: MULTIPLE SCLEROSIS
     Route: 030
     Dates: start: 20070321, end: 20091225
  2. AVONEX [Suspect]
     Route: 030
     Dates: start: 20100601, end: 20111207

REACTIONS (4)
  - GAIT DISTURBANCE [None]
  - BLADDER DISORDER [None]
  - CONFUSIONAL STATE [None]
  - FATIGUE [None]
